FAERS Safety Report 9191792 (Version 4)
Quarter: 2014Q1

REPORT INFORMATION
  Report Type: Spontaneous
  Country: US (occurrence: US)
  Receive Date: 20130327
  Receipt Date: 20140226
  Transmission Date: 20141002
  Serious: Yes (Hospitalization)
  Sender: FDA-Public Use
  Company Number: US-BIOGENIDEC-2013BI026619

PATIENT
  Age: 64 Year
  Sex: Female

DRUGS (5)
  1. AVONEX [Suspect]
     Indication: MULTIPLE SCLEROSIS
     Route: 030
  2. AVONEX [Suspect]
     Indication: MULTIPLE SCLEROSIS
     Route: 030
     Dates: start: 20090531
  3. AVONEX [Suspect]
     Indication: MULTIPLE SCLEROSIS
     Route: 030
     Dates: start: 20090601
  4. AVONEX [Suspect]
     Indication: MULTIPLE SCLEROSIS
     Route: 030
  5. VITAMIN D [Concomitant]
     Indication: PRODUCT USED FOR UNKNOWN INDICATION

REACTIONS (19)
  - Breast cancer [Recovered/Resolved]
  - Primary progressive multiple sclerosis [Unknown]
  - Off label use [Unknown]
  - Gait disturbance [Unknown]
  - Memory impairment [Unknown]
  - Osteoporosis [Unknown]
  - Uterine polyp [Recovered/Resolved]
  - Scan abnormal [Unknown]
  - Dysgraphia [Recovered/Resolved]
  - Cognitive disorder [Not Recovered/Not Resolved]
  - Urinary incontinence [Unknown]
  - Stress [Not Recovered/Not Resolved]
  - Dysstasia [Recovered/Resolved]
  - Muscular weakness [Not Recovered/Not Resolved]
  - Pain [Not Recovered/Not Resolved]
  - Emotional distress [Unknown]
  - Anxiety [Unknown]
  - Hepatic enzyme increased [Unknown]
  - Feeling abnormal [Recovered/Resolved]
